FAERS Safety Report 10512718 (Version 1)
Quarter: 2014Q4

REPORT INFORMATION
  Report Type: Spontaneous
  Country: IN (occurrence: IN)
  Receive Date: 20141012
  Receipt Date: 20141012
  Transmission Date: 20150528
  Serious: Yes (Other)
  Sender: FDA-Public Use
  Company Number: IN-BRISTOL-MYERS SQUIBB COMPANY-21482831

PATIENT
  Sex: Male

DRUGS (3)
  1. CARBOPLATIN. [Suspect]
     Active Substance: CARBOPLATIN
     Indication: LUNG ADENOCARCINOMA
  2. TARCEVA [Suspect]
     Active Substance: ERLOTINIB HYDROCHLORIDE
  3. PEMETREXED DISODIUM [Suspect]
     Active Substance: PEMETREXED DISODIUM

REACTIONS (1)
  - Malignant neoplasm progression [Unknown]
